FAERS Safety Report 6418911-4 (Version None)
Quarter: 2009Q4

REPORT INFORMATION
  Report Type: 
  Country: None (occurrence: None)
  Receive Date: 20091028
  Receipt Date: 20091028
  Transmission Date: 20100525
  Serious: Yes (Hospitalization)
  Sender: FDA-Public Use
  Company Number: None

PATIENT
  Sex: Male
  Weight: 64 kg

DRUGS (6)
  1. PEG-L-ASPARAGINASE (K-H) [Suspect]
     Dosage: 34600 IU
  2. VINCRISTINE SULFATE [Suspect]
     Dosage: 6 MG
  3. CYCLOPHOSPHAMIDE [Suspect]
     Dosage: 3380 MG
  4. CYTARABINE [Suspect]
     Dosage: 2028 MG
  5. MERCAPTOPURINE [Suspect]
     Dosage: 2900 MG
  6. METHOTREXATE [Suspect]
     Dosage: 60 MG

REACTIONS (6)
  - CHEST DISCOMFORT [None]
  - DYSPNOEA [None]
  - FACE OEDEMA [None]
  - HYPERHIDROSIS [None]
  - PRURITUS [None]
  - RASH [None]
